FAERS Safety Report 7579525-6 (Version None)
Quarter: 2011Q2

REPORT INFORMATION
  Report Type: 
  Country: None (occurrence: None)
  Receive Date: 20110629
  Receipt Date: 20110616
  Transmission Date: 20111010
  Serious: Yes (Other)
  Sender: FDA-Public Use
  Company Number: CA-JNJFOC-20110609098

PATIENT
  Sex: Male
  Weight: 80 kg

DRUGS (6)
  1. PREVACID [Concomitant]
     Route: 065
  2. REMICADE [Suspect]
     Indication: RHEUMATOID ARTHRITIS
     Route: 042
     Dates: start: 20041215
  3. OXYCODONE HCL [Concomitant]
     Route: 065
  4. REMICADE [Suspect]
     Route: 042
     Dates: start: 20110101
  5. ARAVA [Concomitant]
     Route: 065
  6. PLAQUENIL [Concomitant]
     Route: 065

REACTIONS (1)
  - FOOT FRACTURE [None]
